FAERS Safety Report 14840813 (Version 1)
Quarter: 2018Q2

REPORT INFORMATION
  Report Type: Spontaneous
  Country: US (occurrence: US)
  Receive Date: 20180503
  Receipt Date: 20180503
  Transmission Date: 20180711
  Serious: No
  Sender: FDA-Public Use
  Company Number: US-PFIZER INC-2018180681

PATIENT
  Age: 73 Year
  Sex: Female
  Weight: 109 kg

DRUGS (3)
  1. IBRANCE [Suspect]
     Active Substance: PALBOCICLIB
     Indication: METASTATIC NEOPLASM
     Dosage: 100 MG, CYCLIC (ONCE A DAY)
     Route: 048
     Dates: start: 201608
  2. FEMARA [Concomitant]
     Active Substance: LETROZOLE
     Indication: BONE CANCER
     Dosage: 2.5 MG, UNK
  3. FEMARA [Concomitant]
     Active Substance: LETROZOLE
     Indication: HEPATIC CANCER

REACTIONS (1)
  - Neoplasm progression [Unknown]
